FAERS Safety Report 23093736 (Version 2)
Quarter: 2023Q4

REPORT INFORMATION
  Report Type: Spontaneous
  Country: ES (occurrence: ES)
  Receive Date: 20231023
  Receipt Date: 20231215
  Transmission Date: 20240110
  Serious: Yes (Hospitalization)
  Sender: FDA-Public Use
  Company Number: ES-AMGEN-ESPSP2023185806

PATIENT
  Age: 76 Year
  Sex: Female

DRUGS (2)
  1. BEVACIZUMAB [Suspect]
     Active Substance: BEVACIZUMAB
     Indication: Colon cancer stage IV
     Dosage: UNK, CYCLICAL
     Route: 065
  2. CAPECITABINE\OXALIPLATIN [Suspect]
     Active Substance: CAPECITABINE\OXALIPLATIN
     Indication: Colon cancer stage IV
     Dosage: UNK, CYCLICAL
     Route: 065

REACTIONS (6)
  - Enteritis [Recovered/Resolved]
  - Hypoalbuminaemia [Recovered/Resolved]
  - Hypocalcaemia [Recovered/Resolved]
  - Leukocytosis [Recovered/Resolved]
  - Leukopenia [Recovered/Resolved]
  - Prothrombin level decreased [Unknown]
